FAERS Safety Report 8923609 (Version 2)
Quarter: 2013Q1

REPORT INFORMATION
  Report Type: Spontaneous
  Country: TR (occurrence: None)
  Receive Date: 20121115
  Receipt Date: 20130329
  Transmission Date: 20140127
  Serious: Yes (Hospitalization)
  Sender: FDA-Public Use
  Company Number: 2012-565

PATIENT
  Age: 46 Year
  Sex: Male

DRUGS (1)
  1. CLOZAPINE [Suspect]
     Indication: SCHIZOPHRENIA
     Dosage: DAY 2
     Route: 048

REACTIONS (8)
  - Drug withdrawal syndrome [None]
  - Catatonia [None]
  - Decubitus ulcer [None]
  - General physical health deterioration [None]
  - Hallucinations, mixed [None]
  - Urinary tract infection [None]
  - Insomnia [None]
  - Persecutory delusion [None]
